FAERS Safety Report 21572584 (Version 1)
Quarter: 2022Q4

REPORT INFORMATION
  Report Type: Report from Study
  Country: US (occurrence: US)
  Receive Date: 20221109
  Receipt Date: 20221109
  Transmission Date: 20230112
  Serious: No
  Sender: FDA-Public Use
  Company Number: US-ABBVIE-22K-163-4491875-00

PATIENT
  Age: 65 Year
  Sex: Female

DRUGS (1)
  1. RINVOQ [Suspect]
     Active Substance: UPADACITINIB
     Indication: Rheumatoid arthritis
     Route: 048
     Dates: start: 20220614

REACTIONS (5)
  - Constipation [Recovered/Resolved]
  - Vertigo [Unknown]
  - Balance disorder [Unknown]
  - Dizziness [Unknown]
  - Infrequent bowel movements [Recovered/Resolved]

NARRATIVE: CASE EVENT DATE: 20220624
